FAERS Safety Report 9913025 (Version 1)
Quarter: 2014Q1

REPORT INFORMATION
  Report Type: Spontaneous
  Country: US (occurrence: US)
  Receive Date: 20140220
  Receipt Date: 20140220
  Transmission Date: 20141002
  Serious: No
  Sender: FDA-Public Use
  Company Number: US-PFIZER INC-2014047980

PATIENT
  Sex: Male

DRUGS (6)
  1. PRISTIQ [Suspect]
     Indication: DEPRESSION
     Dosage: 50 MG, 1X/DAY (Q AM)
  2. PRISTIQ [Suspect]
     Indication: BIPOLAR DISORDER
  3. ABILIFY [Concomitant]
     Dosage: UNK
  4. WELLBUTRIN [Concomitant]
     Dosage: UNK
  5. RITALIN [Concomitant]
     Dosage: UNK
  6. CLONAZEPAM [Concomitant]
     Dosage: UNK

REACTIONS (1)
  - Ejaculation disorder [Unknown]
